FAERS Safety Report 14159002 (Version 1)
Quarter: 2017Q4

REPORT INFORMATION
  Report Type: Report from Study
  Country: US (occurrence: US)
  Receive Date: 20171103
  Receipt Date: 20171103
  Transmission Date: 20180321
  Serious: No
  Sender: FDA-Public Use
  Company Number: US-TARO-2016TAR01018

PATIENT
  Age: 51 Year
  Sex: Male
  Weight: 78.91 kg

DRUGS (3)
  1. FLUOCINOLONE ACETONIDE TOPICAL SOLUTION USP 0.01% [Suspect]
     Active Substance: FLUOCINOLONE ACETONIDE
     Indication: SKIN ABRASION
     Dosage: UNK UNK, 2X/DAY
     Route: 061
     Dates: start: 20161202
  2. COZAAR [Concomitant]
     Active Substance: LOSARTAN POTASSIUM
  3. PREVACID [Concomitant]
     Active Substance: LANSOPRAZOLE

REACTIONS (3)
  - Application site warmth [Recovering/Resolving]
  - Incorrect dose administered [Recovered/Resolved]
  - Application site erythema [Recovering/Resolving]

NARRATIVE: CASE EVENT DATE: 20161202
